FAERS Safety Report 4918687-3 (Version None)
Quarter: 2006Q1

REPORT INFORMATION
  Report Type: 
  Country: None (occurrence: None)
  Receive Date: 20060216
  Receipt Date: 20060201
  Transmission Date: 20060701
  Serious: Yes (Other)
  Sender: FDA-Public Use
  Company Number: JSJ 065

PATIENT
  Age: 80 Year
  Sex: Female
  Weight: 51.7101 kg

DRUGS (3)
  1. HYDROQUINONE [Suspect]
     Indication: SKIN DISCOLOURATION
     Dosage: BID
     Dates: start: 20050915, end: 20060110
  2. CALCIUM GLUCONATE [Concomitant]
  3. VITAMIN B COMPLEX CAP [Concomitant]

REACTIONS (2)
  - CONDITION AGGRAVATED [None]
  - SKIN DISCOLOURATION [None]
